FAERS Safety Report 9444662 (Version 2)
Quarter: 2013Q3

REPORT INFORMATION
  Report Type: Spontaneous
  Country: CO (occurrence: CO)
  Receive Date: 20130807
  Receipt Date: 20130927
  Transmission Date: 20140515
  Serious: Yes (Other)
  Sender: FDA-Public Use
  Company Number: CO-PFIZER INC-2013229109

PATIENT
  Age: 91 Year
  Sex: Female

DRUGS (8)
  1. LYRICA [Suspect]
     Indication: ARTHRALGIA
     Dosage: 150 MG, 1X/DAY
     Route: 048
     Dates: start: 2011, end: 20130730
  2. LYRICA [Suspect]
     Indication: BACK PAIN
  3. LYRICA [Suspect]
     Indication: SPINAL PAIN
  4. LYRICA [Suspect]
     Indication: BURNING SENSATION
  5. LYRICA [Suspect]
     Indication: CARDIOVASCULAR DISORDER
  6. LYRICA [Suspect]
     Indication: LUMBAR RADICULOPATHY
  7. ACETAMINOPHEN [Concomitant]
     Indication: PAIN
     Dosage: 600 MG, 4X/DAY
     Route: 048
  8. ACETAMINOPHEN [Concomitant]
     Indication: LUMBAR RADICULOPATHY

REACTIONS (2)
  - Parkinson^s disease [Unknown]
  - Somnolence [Recovered/Resolved]
